FAERS Safety Report 23824877 (Version 1)
Quarter: 2024Q2

REPORT INFORMATION
  Report Type: Spontaneous
  Country: US (occurrence: US)
  Receive Date: 20240507
  Receipt Date: 20240507
  Transmission Date: 20240716
  Serious: No
  Sender: FDA-Public Use
  Company Number: US-ELI_LILLY_AND_COMPANY-US202405003111

PATIENT
  Age: 21 Year
  Sex: Female

DRUGS (2)
  1. TALTZ [Suspect]
     Active Substance: IXEKIZUMAB
     Indication: Psoriasis
     Dosage: UNK UNK, MONTHLY (1/M)
     Route: 065
     Dates: start: 202303
  2. TALTZ [Suspect]
     Active Substance: IXEKIZUMAB
     Indication: Eczema

REACTIONS (3)
  - Injection site haemorrhage [Unknown]
  - Injection site erythema [Unknown]
  - Injection site mass [Unknown]
